FAERS Safety Report 10367263 (Version 1)
Quarter: 2014Q3

REPORT INFORMATION
  Report Type: Spontaneous
  Country: MP (occurrence: None)
  Receive Date: 20140805
  Receipt Date: 20140805
  Transmission Date: 20150326
  Serious: Yes (Other)
  Sender: FDA-Public Use
  Company Number: None

PATIENT
  Age: 42 Year
  Sex: Male
  Weight: 54 kg

DRUGS (1)
  1. TESTERONE GEL (CERNOS) 50 MG SUN PHARMA INDIA [Suspect]
     Active Substance: TESTOSTERONE
     Indication: ERECTILE DYSFUNCTION
     Dosage: 4 PATCHES ONLY, 1 PATCH DAILY, ONCE DAILY, APPLIED TO A SURFACE USUALLY THE SKIN

REACTIONS (18)
  - Hyperhidrosis [None]
  - Muscular weakness [None]
  - Blood pressure increased [None]
  - Sedation [None]
  - Somnolence [None]
  - Eye irritation [None]
  - Neck pain [None]
  - Dry skin [None]
  - Headache [None]
  - Dyspepsia [None]
  - Abasia [None]
  - Hair growth abnormal [None]
  - Blood pressure fluctuation [None]
  - Fatigue [None]
  - Abdominal discomfort [None]
  - Musculoskeletal stiffness [None]
  - Skin irritation [None]
  - Activities of daily living impaired [None]

NARRATIVE: CASE EVENT DATE: 20130316
